FAERS Safety Report 8308138-3 (Version None)
Quarter: 2012Q2

REPORT INFORMATION
  Report Type: 
  Country: None (occurrence: None)
  Receive Date: 20120424
  Receipt Date: 20120420
  Transmission Date: 20120825
  Serious: Yes (Hospitalization)
  Sender: FDA-Public Use
  Company Number: NL-ROCHE-1054582

PATIENT
  Sex: Female
  Weight: 90 kg

DRUGS (4)
  1. AVASTIN [Suspect]
     Indication: BREAST CANCER METASTATIC
     Route: 042
     Dates: start: 20120126
  2. PACLITAXEL [Concomitant]
     Indication: BREAST CANCER METASTATIC
  3. NAPROXEN [Concomitant]
  4. DEXAMETHASONE [Concomitant]

REACTIONS (7)
  - HEART VALVE INCOMPETENCE [None]
  - DIARRHOEA [None]
  - PLEURISY [None]
  - CARDIOMYOPATHY [None]
  - INFLUENZA [None]
  - PYREXIA [None]
  - EJECTION FRACTION DECREASED [None]
